FAERS Safety Report 4469269-1 (Version None)
Quarter: 2004Q4

REPORT INFORMATION
  Report Type: 
  Country: None (occurrence: None)
  Receive Date: 20041008
  Receipt Date: 20030818
  Transmission Date: 20050328
  Serious: No
  Sender: FDA-Public Use
  Company Number: US-BRISTOL-MYERS SQUIBB COMPANY-12357869

PATIENT
  Age: 61 Year
  Sex: Female
  Weight: 98 kg

DRUGS (3)
  1. AVAPRO [Suspect]
     Indication: HYPERTENSION
     Dosage: VARYING DOSE
     Route: 048
     Dates: start: 20020501
  2. PROVIGIL [Concomitant]
  3. LEXAPRO [Concomitant]

REACTIONS (2)
  - FATIGUE [None]
  - PHOTOSENSITIVITY REACTION [None]
